FAERS Safety Report 7929914-2 (Version None)
Quarter: 2011Q4

REPORT INFORMATION
  Report Type: 
  Country: None (occurrence: None)
  Receive Date: 20111108
  Receipt Date: 20110210
  Transmission Date: 20120403
  Serious: Yes (Other)
  Sender: FDA-Public Use
  Company Number: PHHY2011US10888

PATIENT
  Age: 70 Year
  Sex: Female

DRUGS (4)
  1. ZOMETA [Suspect]
     Indication: METASTASES TO BONE
     Dosage: INFUSION
  2. ARIMIDEX [Suspect]
  3. HBP MEDICATION (NO INGREDIENTS/SUBSTANCES) [Concomitant]
  4. RADIATION THERAPY (NO INGREDIENTS/SUBSTANCES) [Concomitant]

REACTIONS (1)
  - NEOPLASM MALIGNANT [None]
